FAERS Safety Report 7496313-X (Version None)
Quarter: 2011Q2

REPORT INFORMATION
  Report Type: 
  Country: None (occurrence: None)
  Receive Date: 20110523
  Receipt Date: 20110518
  Transmission Date: 20111010
  Serious: Yes (Life-Threatening)
  Sender: FDA-Public Use
  Company Number: FR-EISAI INC-E2020-09190-SPO-FR

PATIENT
  Age: 28 Year
  Sex: Male

DRUGS (2)
  1. ARICEPT [Suspect]
     Route: 048
     Dates: start: 20020101
  2. MEMANTINE [Suspect]
     Dosage: UNKNOWN
     Route: 048

REACTIONS (1)
  - VENTRICULAR FIBRILLATION [None]
